FAERS Safety Report 11787029 (Version 1)
Quarter: 2015Q4

REPORT INFORMATION
  Report Type: Report from Study
  Country: US (occurrence: US)
  Receive Date: 20151130
  Receipt Date: 20151130
  Transmission Date: 20160305
  Serious: No
  Sender: FDA-Public Use
  Company Number: US-AMGEN-USASL2015123692

PATIENT
  Age: 51 Year
  Sex: Male

DRUGS (1)
  1. ENBREL [Suspect]
     Active Substance: ETANERCEPT
     Indication: PSORIATIC ARTHROPATHY
     Dosage: UNK UNK, QWK
     Route: 065
     Dates: start: 20151016

REACTIONS (11)
  - Chest discomfort [Unknown]
  - Increased upper airway secretion [Unknown]
  - Condition aggravated [Unknown]
  - Asthenia [Unknown]
  - Sinus headache [Unknown]
  - Fatigue [Unknown]
  - Dyspnoea exertional [Unknown]
  - Musculoskeletal stiffness [Unknown]
  - Myalgia [Unknown]
  - Dizziness [Unknown]
  - Sinus disorder [Unknown]

NARRATIVE: CASE EVENT DATE: 2015
